FAERS Safety Report 21788381 (Version 1)
Quarter: 2022Q4

REPORT INFORMATION
  Report Type: Spontaneous
  Country: IT (occurrence: IT)
  Receive Date: 20221228
  Receipt Date: 20221228
  Transmission Date: 20230112
  Serious: Yes (Other)
  Sender: FDA-Public Use
  Company Number: IT-TEVA-2022-IT-2839628

PATIENT
  Sex: Female

DRUGS (1)
  1. AJOVY [Suspect]
     Active Substance: FREMANEZUMAB-VFRM
     Indication: Product used for unknown indication
     Route: 065

REACTIONS (4)
  - Headache [Recovered/Resolved]
  - Myalgia [Recovered/Resolved]
  - Fatigue [Recovered/Resolved]
  - Vomiting [Recovered/Resolved]
